FAERS Safety Report 19899848 (Version 1)
Quarter: 2021Q3

REPORT INFORMATION
  Report Type: Spontaneous
  Country: NL (occurrence: NL)
  Receive Date: 20210929
  Receipt Date: 20210929
  Transmission Date: 20211014
  Serious: Yes (Hospitalization, Disabling)
  Sender: FDA-Public Use
  Company Number: NL-MYLANLABS-2021M1066546

PATIENT
  Age: 56 Year
  Sex: Female
  Weight: 82 kg

DRUGS (1)
  1. ENALAPRIL/HYDROCHLOROTHIAZIDE MYLAN 20 MG/12,5 MG, COMPRIM? S?CABLE [Suspect]
     Active Substance: ENALAPRIL\HYDROCHLOROTHIAZIDE
     Indication: HYPERTENSION
     Dosage: 1 TABLET ONCE A DAY
     Dates: start: 2021

REACTIONS (3)
  - Flight of ideas [Unknown]
  - Blood pressure increased [Unknown]
  - Therapeutic response unexpected [Unknown]

NARRATIVE: CASE EVENT DATE: 20210517
